FAERS Safety Report 21925217 (Version 2)
Quarter: 2023Q1

REPORT INFORMATION
  Report Type: Report from Study
  Country: DK (occurrence: DK)
  Receive Date: 20230130
  Receipt Date: 20230208
  Transmission Date: 20230418
  Serious: Yes (Hospitalization, Other)
  Sender: FDA-Public Use
  Company Number: DK-CELLTRION INC.-2022DK022247

PATIENT

DRUGS (34)
  1. RITUXIMAB [Suspect]
     Active Substance: RITUXIMAB
     Indication: Follicular lymphoma stage IV
     Dosage: 375 MG/M2, 1/WEEK
     Route: 042
     Dates: start: 20211228, end: 20220125
  2. RITUXIMAB [Suspect]
     Active Substance: RITUXIMAB
     Indication: Follicular lymphoma
     Dosage: 375 MG/M2, 1/WEEK
     Route: 042
     Dates: start: 20220125
  3. RITUXIMAB [Suspect]
     Active Substance: RITUXIMAB
     Dosage: EVERY 7 DAYS
     Route: 041
     Dates: start: 20211228, end: 20220125
  4. RITUXIMAB [Suspect]
     Active Substance: RITUXIMAB
     Dosage: UNK
     Route: 065
     Dates: start: 20210330, end: 20210803
  5. EPCORITAMAB [Suspect]
     Active Substance: EPCORITAMAB
     Indication: Follicular lymphoma stage IV
     Dosage: PRIMING DOSE (DOSAGE FORM: 120)/PRIMING , SINGLE
     Route: 058
     Dates: start: 20211228, end: 20211228
  6. EPCORITAMAB [Suspect]
     Active Substance: EPCORITAMAB
     Indication: Follicular lymphoma
     Dosage: INTERMEDIATE DOSE (DOSAGE FORM: 120)/INTERMEDIATE DOSE, SINGLE;
     Route: 058
     Dates: start: 20220104, end: 20220104
  7. EPCORITAMAB [Suspect]
     Active Substance: EPCORITAMAB
     Dosage: FULL DOSE (DOSAGE FORM: 120)
     Route: 058
     Dates: start: 20220111
  8. EPCORITAMAB [Suspect]
     Active Substance: EPCORITAMAB
     Dosage: FULL DOSE, EVERY 7 DAYS  (DOSAGE FORM: 120)
     Route: 058
     Dates: start: 20220215
  9. EPCORITAMAB [Suspect]
     Active Substance: EPCORITAMAB
     Dosage: 0.8 MG (IMMEDIATE DOSE SINGLE)
     Route: 058
     Dates: start: 20220104, end: 20220104
  10. EPCORITAMAB [Suspect]
     Active Substance: EPCORITAMAB
     Indication: Follicular lymphoma stage IV
     Dosage: 48 MG, EVERY 7 DAYS, FULL DOSE
     Route: 058
     Dates: start: 20220215
  11. EPCORITAMAB [Suspect]
     Active Substance: EPCORITAMAB
     Indication: Follicular lymphoma
     Dosage: 48 MG, EVERY 7 DAYS, FULL DOSE
     Route: 058
     Dates: start: 20220208
  12. LENALIDOMIDE [Suspect]
     Active Substance: LENALIDOMIDE
     Indication: Follicular lymphoma stage IV
     Dosage: 20 MG, QD (DOSAGE FORM: 5)
     Route: 048
     Dates: start: 20211228, end: 20220117
  13. LENALIDOMIDE [Suspect]
     Active Substance: LENALIDOMIDE
     Indication: Follicular lymphoma
     Dosage: 20 MILLIGRAM, (DOSAGE FORM: 5)
     Route: 048
     Dates: start: 20220125, end: 20220203
  14. LENALIDOMIDE [Suspect]
     Active Substance: LENALIDOMIDE
     Dosage: 20 MG, QD
     Route: 048
     Dates: start: 20220125, end: 20220203
  15. LENALIDOMIDE [Suspect]
     Active Substance: LENALIDOMIDE
     Dosage: 20 MG, EVERY 1 DAY
     Route: 048
     Dates: start: 20220125, end: 20220204
  16. ACETAMINOPHEN [Concomitant]
     Active Substance: ACETAMINOPHEN
     Indication: Product used for unknown indication
     Dosage: UNK
     Route: 065
     Dates: start: 20220112, end: 20220115
  17. CHLORAMPHENICOL [Concomitant]
     Active Substance: CHLORAMPHENICOL
     Indication: Product used for unknown indication
     Dosage: 0.5 PERCENT
     Route: 065
     Dates: start: 20220121, end: 20220126
  18. CHLORAMPHENICOL [Concomitant]
     Active Substance: CHLORAMPHENICOL
     Dosage: UNK
     Dates: start: 20220121, end: 20220208
  19. CHLORAMPHENICOL [Concomitant]
     Active Substance: CHLORAMPHENICOL
     Dosage: 0.5 %,FREQUENCY TEXT: NOT PROVIDED
     Dates: start: 20220221
  20. CHLORAMPHENICOL [Concomitant]
     Active Substance: CHLORAMPHENICOL
     Dosage: 0.5 %
     Dates: start: 20220121, end: 20220208
  21. SOLU-MEDROL [Concomitant]
     Active Substance: METHYLPREDNISOLONE SODIUM SUCCINATE
     Indication: Product used for unknown indication
     Dosage: UNK
     Route: 065
     Dates: start: 20220115, end: 20220115
  22. PREDNISOLONE [Concomitant]
     Active Substance: PREDNISOLONE
     Indication: Product used for unknown indication
     Dosage: UNK
     Route: 065
     Dates: start: 20220116, end: 20220117
  23. FUSIDIC ACID [Concomitant]
     Active Substance: FUSIDIC ACID
     Indication: Product used for unknown indication
     Dosage: UNK
     Route: 065
     Dates: start: 20220118, end: 20220121
  24. TOCILIZUMAB [Concomitant]
     Active Substance: TOCILIZUMAB
     Indication: Product used for unknown indication
     Dosage: UNK
     Route: 065
     Dates: start: 20220115, end: 20220115
  25. BISACODYL [Concomitant]
     Active Substance: BISACODYL
     Indication: Product used for unknown indication
     Dosage: UNK
     Route: 065
     Dates: start: 20210106
  26. BISACODYL [Concomitant]
     Active Substance: BISACODYL
     Dosage: UNK
     Dates: start: 20210706
  27. ASPIRIN [Concomitant]
     Active Substance: ASPIRIN
     Indication: Product used for unknown indication
     Dosage: UNK
     Route: 065
     Dates: start: 20211228, end: 20220204
  28. BIOCODYL [Concomitant]
     Indication: Product used for unknown indication
     Dosage: UNK
     Dates: start: 20210106
  29. BIOCODYL [Concomitant]
     Dosage: UNK
     Dates: start: 20210706
  30. EPCORITAMAB [Concomitant]
     Active Substance: EPCORITAMAB
     Indication: Follicular lymphoma stage IV
     Dosage: IMMEDIATE DOSE SINGLE
     Dates: start: 20220104, end: 20220104
  31. EPCORITAMAB [Concomitant]
     Active Substance: EPCORITAMAB
     Dosage: PRIMING SINGLE
     Dates: start: 20211228, end: 20211228
  32. EPCORITAMAB [Concomitant]
     Active Substance: EPCORITAMAB
     Dosage: FULL DOSE, EVERY 7 DAYS
     Dates: start: 20220208
  33. EPCORITAMAB [Concomitant]
     Active Substance: EPCORITAMAB
     Dosage: FULL DOSE, 7 DAYS
     Dates: start: 20220215
  34. EPCORITAMAB [Concomitant]
     Active Substance: EPCORITAMAB
     Dosage: FULL DOSE, EVERY 1 WEEK
     Dates: start: 20220111

REACTIONS (3)
  - Pneumonitis [Recovered/Resolved]
  - Interstitial lung disease [Recovered/Resolved]
  - Pneumocystis jirovecii infection [Unknown]

NARRATIVE: CASE EVENT DATE: 20220202
